FAERS Safety Report 9852751 (Version 2)
Quarter: 2014Q2

REPORT INFORMATION
  Report Type: Spontaneous
  Country: SE (occurrence: SE)
  Receive Date: 20140129
  Receipt Date: 20140508
  Transmission Date: 20141212
  Serious: Yes (Hospitalization)
  Sender: FDA-Public Use
  Company Number: SE-ASTRAZENECA-2014SE04493

PATIENT
  Age: 68 Year
  Sex: Female
  Weight: 73 kg

DRUGS (9)
  1. CRESTOR [Suspect]
     Route: 048
     Dates: start: 20120211, end: 20131018
  2. ZOCORD [Suspect]
     Indication: MYOCARDIAL INFARCTION
     Route: 065
     Dates: start: 20090601, end: 20101112
  3. LIPITOR [Suspect]
     Route: 065
  4. ATACAND [Concomitant]
  5. PANTOLOC [Concomitant]
  6. PLAVIX [Concomitant]
  7. TROMBYL [Concomitant]
  8. BISOPROLOL [Concomitant]
  9. RAMIPRIL [Concomitant]

REACTIONS (3)
  - Diarrhoea [Not Recovered/Not Resolved]
  - Vomiting [Not Recovered/Not Resolved]
  - Abdominal pain [Not Recovered/Not Resolved]
